FAERS Safety Report 17164389 (Version 1)
Quarter: 2019Q4

REPORT INFORMATION
  Report Type: Other
  Country: CA (occurrence: CA)
  Receive Date: 20191217
  Receipt Date: 20191217
  Transmission Date: 20200122
  Serious: Yes (Other)
  Sender: FDA-Public Use
  Company Number: CA-PFIZER INC-2019541157

PATIENT
  Age: 58 Month

DRUGS (5)
  1. VINCRISTINE SULFATE. [Suspect]
     Active Substance: VINCRISTINE SULFATE
     Indication: RETINOBLASTOMA
     Dosage: 0.025 MG/KG, UNK
     Route: 065
  2. VINCRISTINE SULFATE. [Suspect]
     Active Substance: VINCRISTINE SULFATE
     Dosage: UNK
  3. CARBOPLATIN. [Suspect]
     Active Substance: CARBOPLATIN
     Indication: RETINOBLASTOMA
     Dosage: 28 MG/KG, UNK
  4. CICLOSPORIN [Suspect]
     Active Substance: CYCLOSPORINE
     Dosage: 33 MG/KG, UNK
  5. TENIPOSIDE. [Suspect]
     Active Substance: TENIPOSIDE
     Indication: RETINOBLASTOMA
     Dosage: UNK

REACTIONS (3)
  - Product use in unapproved indication [Unknown]
  - Ototoxicity [Unknown]
  - Off label use [Unknown]
